FAERS Safety Report 4842458-X (Version None)
Quarter: 2005Q4

REPORT INFORMATION
  Report Type: 
  Country: None (occurrence: None)
  Receive Date: 20051201
  Receipt Date: 20050824
  Transmission Date: 20060501
  Serious: Yes (Other)
  Sender: FDA-Public Use
  Company Number: US-BRISTOL-MYERS SQUIBB COMPANY-13088521

PATIENT
  Age: 55 Year
  Sex: Male
  Weight: 74 kg

DRUGS (6)
  1. BARACLUDE [Suspect]
     Indication: HEPATITIS B
     Route: 048
     Dates: start: 20050801, end: 20050824
  2. HEPSERA [Suspect]
     Route: 048
     Dates: start: 20050701, end: 20050101
  3. AVAPRO [Concomitant]
  4. ZETIA [Concomitant]
  5. MULTI-VITAMINS [Concomitant]
  6. METHADONE HCL [Concomitant]

REACTIONS (3)
  - CARDIAC ARREST [None]
  - DIZZINESS [None]
  - ELECTROCARDIOGRAM QT PROLONGED [None]
